FAERS Safety Report 7726292-9 (Version None)
Quarter: 2011Q3

REPORT INFORMATION
  Report Type: 
  Country: None (occurrence: None)
  Receive Date: 20110831
  Receipt Date: 20110816
  Transmission Date: 20111222
  Serious: Yes (Death, Hospitalization)
  Sender: FDA-Public Use
  Company Number: 2011US000048

PATIENT
  Age: 83 Year
  Sex: Female

DRUGS (2)
  1. ENTEREG [Suspect]
     Indication: POSTOPERATIVE ILEUS
     Dosage: 12 MG;PO
     Route: 048
     Dates: start: 20101103, end: 20101109
  2. LOVENOX [Concomitant]

REACTIONS (4)
  - MYOCARDIAL INFARCTION [None]
  - INTESTINAL RESECTION [None]
  - PULMONARY EMBOLISM [None]
  - BLOOD PRESSURE DECREASED [None]
